FAERS Safety Report 16553774 (Version 1)
Quarter: 2019Q3

REPORT INFORMATION
  Report Type: Report from Study
  Country: KR (occurrence: KR)
  Receive Date: 20190710
  Receipt Date: 20190710
  Transmission Date: 20191004
  Serious: Yes (Other)
  Sender: FDA-Public Use
  Company Number: KR-PFIZER INC-2019289349

PATIENT

DRUGS (2)
  1. METHYLPREDNISOLONE SODIUM SUCCINATE. [Suspect]
     Active Substance: METHYLPREDNISOLONE SODIUM SUCCINATE
     Indication: GLOMERULONEPHRITIS
     Dosage: ONE CYCLE OF MP PULSE CONSIST OF METHYLPREDNISOLONE 20-30MG/KG (MAX1,000MG)/DAY MIXED) 3 CONSECUTIV
  2. DEFLAZACORT [Suspect]
     Active Substance: DEFLAZACORT
     Indication: GLOMERULONEPHRITIS MEMBRANOUS
     Dosage: 0.5 MG/KG, DAILY (BETWEEN PULSE THERAPY)

REACTIONS (1)
  - Cataract [Unknown]
